FAERS Safety Report 13489366 (Version 1)
Quarter: 2017Q2

REPORT INFORMATION
  Report Type: Spontaneous
  Country: GB (occurrence: GB)
  Receive Date: 20170427
  Receipt Date: 20170427
  Transmission Date: 20170830
  Serious: Yes (Life-Threatening)
  Sender: FDA-Public Use
  Company Number: GB-TEVA-761736ACC

PATIENT
  Age: 80 Year
  Sex: Male

DRUGS (3)
  1. WARFARIN [Suspect]
     Active Substance: WARFARIN
     Indication: ATRIAL FIBRILLATION
     Dosage: 3-4MG DAILY
     Route: 048
     Dates: start: 20160101, end: 20170404
  2. BISACODYL. [Concomitant]
     Active Substance: BISACODYL
  3. COCODAMOL [Concomitant]
     Active Substance: ACETAMINOPHEN\CODEINE PHOSPHATE

REACTIONS (2)
  - Unresponsive to stimuli [Unknown]
  - Haemorrhage intracranial [Unknown]

NARRATIVE: CASE EVENT DATE: 20170404
